FAERS Safety Report 16414066 (Version 3)
Quarter: 2019Q2

REPORT INFORMATION
  Report Type: Spontaneous
  Country: US (occurrence: US)
  Receive Date: 20190611
  Receipt Date: 20190614
  Transmission Date: 20190711
  Serious: Yes (Other)
  Sender: FDA-Public Use
  Company Number: US-SA-2019SA156276

PATIENT
  Age: 72 Year
  Sex: Male

DRUGS (3)
  1. PRALUENT [Suspect]
     Active Substance: ALIROCUMAB
     Dosage: 75 MG, QOW
     Dates: start: 20190521
  2. BACTRIM [Suspect]
     Active Substance: SULFAMETHOXAZOLE\TRIMETHOPRIM
     Indication: WOUND INFECTION STAPHYLOCOCCAL
     Dosage: UNK
     Dates: start: 20190530
  3. BACTRIM [Suspect]
     Active Substance: SULFAMETHOXAZOLE\TRIMETHOPRIM
     Dosage: UNK UNK, UNK
     Dates: start: 20190603

REACTIONS (16)
  - Discomfort [Unknown]
  - Diarrhoea [Unknown]
  - Incorrect dose administered [Not Recovered/Not Resolved]
  - Chronic obstructive pulmonary disease [Unknown]
  - Asthenia [Recovering/Resolving]
  - Cough [Unknown]
  - Pollakiuria [Unknown]
  - Weight decreased [Unknown]
  - Ill-defined disorder [Unknown]
  - Cardiac failure congestive [Unknown]
  - Decreased appetite [Recovering/Resolving]
  - Muscle twitching [Recovered/Resolved]
  - Device use issue [Not Recovered/Not Resolved]
  - Chills [Unknown]
  - Nausea [Recovering/Resolving]
  - Myalgia [Unknown]

NARRATIVE: CASE EVENT DATE: 2019
